FAERS Safety Report 23994254 (Version 1)
Quarter: 2024Q2

REPORT INFORMATION
  Report Type: Spontaneous
  Country: CN (occurrence: CN)
  Receive Date: 20240620
  Receipt Date: 20240620
  Transmission Date: 20240717
  Serious: Yes (Life-Threatening)
  Sender: FDA-Public Use
  Company Number: CN-BAYER-2024A088239

PATIENT
  Age: 69 Year
  Sex: Male

DRUGS (1)
  1. ULTRAVIST [Suspect]
     Active Substance: IOPROMIDE
     Indication: Computerised tomogram heart
     Dosage: 60 ML, ONCE
     Route: 042
     Dates: start: 20240611, end: 20240611

REACTIONS (5)
  - Anaphylactic shock [Recovering/Resolving]
  - Blood pressure immeasurable [Recovering/Resolving]
  - Dizziness [Recovering/Resolving]
  - Cold sweat [Recovered/Resolved]
  - Abdominal pain [Recovering/Resolving]

NARRATIVE: CASE EVENT DATE: 20240611
